FAERS Safety Report 25534679 (Version 3)
Quarter: 2025Q3

REPORT INFORMATION
  Report Type: Spontaneous
  Country: EU (occurrence: EU)
  Receive Date: 20250709
  Receipt Date: 20250709
  Transmission Date: 20251021
  Serious: Yes (Other)
  Sender: GUERBET
  Company Number: None

PATIENT
  Sex: Male
  Weight: 15 kg

DRUGS (2)
  1. ELUCIREM [Suspect]
     Active Substance: GADOPICLENOL
     Indication: Magnetic resonance imaging
     Route: 042
     Dates: start: 20250624, end: 20250624
  2. PROPOFOL [Concomitant]
     Active Substance: PROPOFOL
     Indication: Sedative therapy
     Route: 042
     Dates: start: 20250624, end: 20250624

REACTIONS (4)
  - Retching [Recovered/Resolved]
  - Cough [Recovered/Resolved]
  - Oxygen saturation decreased [Recovered/Resolved]
  - Procedural complication [Recovered/Resolved]

NARRATIVE: CASE EVENT DATE: 20250624
